FAERS Safety Report 15903304 (Version 1)
Quarter: 2019Q1

REPORT INFORMATION
  Report Type: Spontaneous
  Country: FR (occurrence: FR)
  Receive Date: 20190202
  Receipt Date: 20190202
  Transmission Date: 20190417
  Serious: Yes (Other)
  Sender: FDA-Public Use
  Company Number: FR-ACCORD-104809

PATIENT
  Age: 66 Year
  Sex: Male
  Weight: 75 kg

DRUGS (2)
  1. CARBOPLATIN. [Suspect]
     Active Substance: CARBOPLATIN
     Indication: BRONCHIAL CARCINOMA
     Route: 042
     Dates: start: 20180403, end: 20180605
  2. GEMCITABINE [Suspect]
     Active Substance: GEMCITABINE\GEMCITABINE HYDROCHLORIDE
     Indication: BRONCHIAL CARCINOMA
     Dosage: GEMCITABINE HOSPIRA FROM03-APR-2018 TO02-MAY-2018(BATCH:S0201117 ET S0471017)
     Route: 042
     Dates: start: 20180403, end: 20180605

REACTIONS (2)
  - Off label use [Unknown]
  - Hepatitis cholestatic [Recovering/Resolving]

NARRATIVE: CASE EVENT DATE: 20180604
